FAERS Safety Report 5233405-X (Version None)
Quarter: 2007Q1

REPORT INFORMATION
  Report Type: 
  Country: None (occurrence: None)
  Receive Date: 20070206
  Receipt Date: 20070124
  Transmission Date: 20070707
  Serious: Yes (Hospitalization)
  Sender: FDA-Public Use
  Company Number: 2007RR-05516

PATIENT
  Age: 50 Year
  Sex: Male
  Weight: 133.2 kg

DRUGS (7)
  1. CIPROFLOXACIN [Suspect]
     Dosage: UNK, UNK, ORAL
     Route: 048
  2. QUINAPRIL HYDROCHLORIDE (QUINAPRIL) UNKNOWN [Concomitant]
  3. PREDNISOLONE [Concomitant]
  4. METHYLDOPA (METHYLDOPA) UNKNOWN [Concomitant]
  5. FRUSEMIDE (FUROSEMIDE) UNKNOWN [Concomitant]
  6. METOLAZONE [Concomitant]
  7. DILTIAZEM (DILTIAZEM) UNKNOWN [Concomitant]

REACTIONS (10)
  - CONDITION AGGRAVATED [None]
  - CUTANEOUS VASCULITIS [None]
  - FATIGUE [None]
  - HYPERTENSION [None]
  - OEDEMA PERIPHERAL [None]
  - PROTEINURIA [None]
  - RED BLOOD CELLS URINE POSITIVE [None]
  - RENAL VASCULITIS [None]
  - SCAR [None]
  - SKIN ULCER [None]
